FAERS Safety Report 9563505 (Version 1)
Quarter: 2013Q1

REPORT INFORMATION
  Report Type: Spontaneous
  Country: US (occurrence: None)
  Receive Date: 20121227
  Receipt Date: 20121227
  Transmission Date: 20140127
  Serious: Yes (Other)
  Sender: FDA-Public Use
  Company Number: PHEH2012US004752

PATIENT
  Age: 50 Year
  Sex: Female
  Weight: 57.1 kg

DRUGS (6)
  1. EXJADE [Suspect]
     Indication: IRON OVERLOAD
     Dosage: 250 MG, PER DAY, ORAL
     Route: 048
  2. MIRALAX ( MACROGOL) [Concomitant]
  3. HYDROCODONE ( HYDROCODONE) [Concomitant]
  4. LEVAQUIN ( LEVOFLOXACIN) [Concomitant]
  5. ALBUTEROL ( SALBUTAMOL) [Concomitant]
  6. FLOVENT ( FLUTICASONE PROPIONATE) [Concomitant]

REACTIONS (4)
  - Sickle cell anaemia with crisis [None]
  - Feeling abnormal [None]
  - Pain [None]
  - Bone pain [None]
